FAERS Safety Report 7729212-6 (Version None)
Quarter: 2011Q3

REPORT INFORMATION
  Report Type: 
  Country: None (occurrence: None)
  Receive Date: 20110906
  Receipt Date: 20110901
  Transmission Date: 20111222
  Serious: No
  Sender: FDA-Public Use
  Company Number: US-PFIZER INC-2011164767

PATIENT
  Age: 89 Year
  Sex: Female

DRUGS (1)
  1. PREMARIN [Suspect]
     Dosage: UNK
     Route: 061

REACTIONS (2)
  - VULVOVAGINAL SWELLING [None]
  - VULVOVAGINAL DISCOMFORT [None]
